FAERS Safety Report 8351891-3 (Version None)
Quarter: 2012Q2

REPORT INFORMATION
  Report Type: 
  Country: None (occurrence: None)
  Receive Date: 20120511
  Receipt Date: 20120509
  Transmission Date: 20120825
  Serious: No
  Sender: FDA-Public Use
  Company Number: US-PFIZER INC-2012113293

PATIENT
  Sex: Male
  Weight: 120 kg

DRUGS (8)
  1. SYNTHROID [Concomitant]
     Dosage: UNK
  2. PRILOSEC [Concomitant]
     Dosage: UNK
  3. POTASSIUM CHLORIDE [Concomitant]
     Dosage: UNK
  4. ZOCOR [Concomitant]
     Dosage: UNK
  5. NORVASC [Concomitant]
     Dosage: UNK
  6. SUTENT [Suspect]
     Indication: METASTATIC RENAL CELL CARCINOMA
     Dosage: 50 MG, DAILY (CURRENTLY ON CYCLE 2, DAY 8 OF 28 DAYS FOLLOWED BY A 14 DAY REST PERIOD)
     Route: 048
     Dates: start: 20120327
  7. AVODART [Concomitant]
     Dosage: UNK
  8. CYMBALTA [Concomitant]
     Dosage: UNK

REACTIONS (3)
  - FATIGUE [None]
  - NAUSEA [None]
  - ABDOMINAL PAIN [None]
